FAERS Safety Report 24215227 (Version 1)
Quarter: 2024Q3

REPORT INFORMATION
  Report Type: Spontaneous
  Country: GB (occurrence: GB)
  Receive Date: 20240816
  Receipt Date: 20240816
  Transmission Date: 20241016
  Serious: Yes (Other)
  Sender: JOHNSON AND JOHNSON
  Company Number: GB-CELLTRION INC.-2024GB019370

PATIENT

DRUGS (2)
  1. REMICADE [Suspect]
     Active Substance: INFLIXIMAB
     Indication: Product used for unknown indication
     Dosage: 3RD INFLIXIMAB INFUSION
     Route: 042
  2. INFLIXIMAB [Suspect]
     Active Substance: INFLIXIMAB
     Indication: Colitis ulcerative
     Dosage: 120MG PRE FILLED PEN PK2
     Route: 058
     Dates: start: 202406

REACTIONS (3)
  - Anaphylactic reaction [Unknown]
  - Pneumonitis [Unknown]
  - Chest pain [Recovered/Resolved]
